FAERS Safety Report 23639682 (Version 11)
Quarter: 2024Q2

REPORT INFORMATION
  Report Type: Spontaneous
  Country: GB (occurrence: GB)
  Receive Date: 20240316
  Receipt Date: 20240528
  Transmission Date: 20240716
  Serious: Yes (Death, Other)
  Sender: FDA-Public Use
  Company Number: GB-CELLTRION INC.-2021GB006804

PATIENT

DRUGS (274)
  1. RITUXIMAB [Suspect]
     Active Substance: RITUXIMAB
     Indication: Diffuse large B-cell lymphoma
     Dosage: 600 MG/M2, EVERY 3 WEEKS / TOTAL VOLUME PRIOR AE 560 ML/DATE OF MOST RECENT DOSE PRIOR TO FIRST EPIS
     Route: 042
     Dates: start: 20201124
  2. RITUXIMAB [Suspect]
     Active Substance: RITUXIMAB
     Dosage: 375 MG/M2 / ADDITIONAL INFO: ROUTE:
     Route: 042
  3. RITUXIMAB [Suspect]
     Active Substance: RITUXIMAB
     Dosage: 375 MG/M2 / ADDITIONAL INFO: ROUTE:
     Route: 042
  4. RITUXIMAB [Suspect]
     Active Substance: RITUXIMAB
     Dosage: 375 MG/M2 / ADDITIONAL INFO: ROUTE:
     Route: 065
  5. RITUXIMAB [Suspect]
     Active Substance: RITUXIMAB
     Dosage: 375 MG/M2 / ADDITIONAL INFO: ROUTE:
     Route: 065
  6. RITUXIMAB [Suspect]
     Active Substance: RITUXIMAB
     Dosage: 1800 MG EVERY 3 WEEKS, 600 MG, TIW / ADDITIONAL INFO: ROUTE:
     Route: 042
     Dates: start: 20210105, end: 20210216
  7. RITUXIMAB [Suspect]
     Active Substance: RITUXIMAB
     Dosage: 9 ML EVERY 3 WEEKS, 3 ML, TIW / ADDITIONAL INFO: ROUTE:
     Route: 042
     Dates: start: 20210216, end: 20210216
  8. RITUXIMAB [Suspect]
     Active Substance: RITUXIMAB
     Dosage: 9 ML EVERY 3 WEEKS, 3 ML, TIW / ADDITIONAL INFO: ROUTE:
     Route: 042
     Dates: start: 20201221, end: 20201221
  9. RITUXIMAB [Suspect]
     Active Substance: RITUXIMAB
     Dosage: UNK / ADDITIONAL INFO: ROUTE:
     Route: 065
  10. RITUXIMAB [Suspect]
     Active Substance: RITUXIMAB
     Dosage: UNK / ADDITIONAL INFO: ROUTE:
     Route: 065
  11. RITUXIMAB [Suspect]
     Active Substance: RITUXIMAB
     Dosage: (TOTAL VOLUME: 560 ML) / ADDITIONAL INFO: ROUTE:
     Route: 042
     Dates: start: 20201215, end: 20201215
  12. RITUXIMAB [Suspect]
     Active Substance: RITUXIMAB
     Dosage: 600 MG/M2 / ADDITIONAL INFO: ROUTE:
     Route: 042
     Dates: start: 20210105, end: 20210105
  13. RITUXIMAB [Suspect]
     Active Substance: RITUXIMAB
     Dosage: 600 MG / ADDITIONAL INFO: ROUTE:
     Route: 042
     Dates: start: 20210126
  14. RITUXIMAB [Suspect]
     Active Substance: RITUXIMAB
     Dosage: 500 MG/M2 / ADDITIONAL INFO: ROUTE:
     Route: 042
     Dates: start: 20210216
  15. RITUXIMAB [Suspect]
     Active Substance: RITUXIMAB
     Dosage: 600 MG/M2 / ADDITIONAL INFO: ROUTE:
     Route: 042
     Dates: start: 20210309, end: 20210309
  16. RITUXIMAB [Suspect]
     Active Substance: RITUXIMAB
     Dosage: 3 ML, TIW
     Route: 065
     Dates: start: 20210216, end: 20210216
  17. RITUXIMAB [Suspect]
     Active Substance: RITUXIMAB
     Dosage: 3 ML, TIW
     Route: 065
     Dates: start: 20210216, end: 20210216
  18. RITUXIMAB [Suspect]
     Active Substance: RITUXIMAB
     Dosage: 3 ML, TIW
     Route: 065
     Dates: start: 20210216, end: 20210216
  19. RITUXIMAB [Suspect]
     Active Substance: RITUXIMAB
     Dosage: 3 ML, TIW
     Route: 065
     Dates: start: 20210216, end: 20210216
  20. RITUXIMAB [Suspect]
     Active Substance: RITUXIMAB
     Dosage: 3 ML, TIW
     Route: 065
     Dates: start: 20210216, end: 20210216
  21. RITUXIMAB [Suspect]
     Active Substance: RITUXIMAB
     Dosage: UNK
     Route: 065
  22. RITUXIMAB [Suspect]
     Active Substance: RITUXIMAB
     Dosage: UNK
     Route: 065
  23. RITUXIMAB [Suspect]
     Active Substance: RITUXIMAB
     Dosage: 9 MG/M2, TOTAL VOLUME PRIOR AE 560 MLDATE OF MOST RECENT DOSE PRIOR TO FIRST EPISODE OF NEUTROPENIA
     Route: 050
     Dates: start: 20201124
  24. RITUXIMAB [Suspect]
     Active Substance: RITUXIMAB
     Dosage: UNK
     Route: 065
  25. RITUXIMAB [Suspect]
     Active Substance: RITUXIMAB
     Dosage: UNK
     Route: 065
  26. RITUXIMAB [Suspect]
     Active Substance: RITUXIMAB
     Dosage: 3 ML, TIW (DOSAGE TEXT: 3 ML, TIW, TIME INTERVAL: 0.33 WK)
     Route: 065
     Dates: start: 20201221, end: 20201221
  27. RITUXIMAB [Suspect]
     Active Substance: RITUXIMAB
     Dosage: 3 ML, TIW (DOSAGE TEXT: 3 ML, TIW, TIME INTERVAL: 0.33 WK)
     Route: 065
     Dates: start: 20201221, end: 20201221
  28. RITUXIMAB [Suspect]
     Active Substance: RITUXIMAB
     Dosage: 3 ML, TIW (DOSAGE TEXT: 3 ML, TIW, TIME INTERVAL: 0.33 WK)
     Route: 065
     Dates: start: 20201221, end: 20201221
  29. RITUXIMAB [Suspect]
     Active Substance: RITUXIMAB
     Dosage: 3 ML, TIW (DOSAGE TEXT: 3 ML, TIW, TIME INTERVAL: 0.33 WK)
     Route: 065
     Dates: start: 20201221, end: 20201221
  30. RITUXIMAB [Suspect]
     Active Substance: RITUXIMAB
     Dosage: 3 ML, TIW (DOSAGE TEXT: 3 ML, TIW, TIME INTERVAL: 0.33 WK)
     Route: 065
     Dates: start: 20201221, end: 20201221
  31. RITUXIMAB [Suspect]
     Active Substance: RITUXIMAB
     Dosage: UNK
     Route: 065
  32. RITUXIMAB [Suspect]
     Active Substance: RITUXIMAB
     Dosage: 600 MG, TIW
     Route: 065
     Dates: start: 20210105, end: 20210216
  33. RITUXIMAB [Suspect]
     Active Substance: RITUXIMAB
     Dosage: 600 MG, TIW
     Route: 042
     Dates: start: 20210105, end: 20210216
  34. RITUXIMAB [Suspect]
     Active Substance: RITUXIMAB
     Dosage: 600 MG, TIW
     Route: 065
     Dates: start: 20210105, end: 20210216
  35. RITUXIMAB [Suspect]
     Active Substance: RITUXIMAB
     Dosage: 600 MG, TIW
     Route: 065
     Dates: start: 20210105, end: 20210216
  36. RITUXIMAB [Suspect]
     Active Substance: RITUXIMAB
     Dosage: 600 MG, TIW
     Route: 042
     Dates: start: 20210105, end: 20210216
  37. RITUXIMAB [Suspect]
     Active Substance: RITUXIMAB
     Dosage: UNK
     Route: 065
  38. RITUXIMAB [Suspect]
     Active Substance: RITUXIMAB
     Dosage: UNK
     Route: 065
  39. RITUXIMAB [Suspect]
     Active Substance: RITUXIMAB
     Dosage: UNK
     Route: 065
  40. RITUXIMAB [Suspect]
     Active Substance: RITUXIMAB
     Dosage: UNK
     Route: 065
  41. RITUXIMAB [Suspect]
     Active Substance: RITUXIMAB
     Dosage: TOTAL VOLUME PRIOR AE 560 MLDATE OF MOST RECENT DOSE PRIOR TO FIRST EPISODE OF NEUTROPENIA 24/NO...
     Route: 042
     Dates: start: 20201124
  42. RITUXIMAB [Suspect]
     Active Substance: RITUXIMAB
     Dosage: TOTAL VOLUME PRIOR AE 560 MLDATE OF MOST RECENT DOSE PRIOR TO FIRST EPISODE OF NEUTROPENIA 24/NO...
     Route: 042
     Dates: start: 20201124
  43. RITUXIMAB [Suspect]
     Active Substance: RITUXIMAB
     Dosage: TOTAL VOLUME PRIOR AE 560 MLDATE OF MOST RECENT DOSE PRIOR TO FIRST EPISODE OF NEUTROPENIA 24/NO...
     Route: 042
     Dates: start: 20201124
  44. RITUXIMAB [Suspect]
     Active Substance: RITUXIMAB
     Dosage: TOTAL VOLUME PRIOR AE 560 MLDATE OF MOST RECENT DOSE PRIOR TO FIRST EPISODE OF NEUTROPENIA 24/NO...
     Route: 042
     Dates: start: 20201124
  45. RITUXIMAB [Suspect]
     Active Substance: RITUXIMAB
     Dosage: TOTAL VOLUME PRIOR AE 560 MLDATE OF MOST RECENT DOSE PRIOR TO FIRST EPISODE OF NEUTROPENIA 24/NO...
     Route: 042
     Dates: start: 20201124
  46. RITUXIMAB [Suspect]
     Active Substance: RITUXIMAB
     Dosage: DURATION: 1 DAY; TIME INTERVAL: 0.33 WK
     Route: 050
     Dates: start: 20201221, end: 20201221
  47. RITUXIMAB [Suspect]
     Active Substance: RITUXIMAB
     Dosage: DURATION: 1 DAY; TIME INTERVAL: 0.33 WK
     Route: 050
     Dates: start: 20201221, end: 20201221
  48. RITUXIMAB [Suspect]
     Active Substance: RITUXIMAB
     Dosage: DURATION: 1 DAY; TIME INTERVAL: 0.33 WK
     Route: 050
     Dates: start: 20201221, end: 20201221
  49. RITUXIMAB [Suspect]
     Active Substance: RITUXIMAB
     Dosage: DURATION: 1 DAY; TIME INTERVAL: 0.33 WK
     Route: 050
     Dates: start: 20201221, end: 20201221
  50. RITUXIMAB [Suspect]
     Active Substance: RITUXIMAB
     Dosage: DURATION: 1 DAY; TIME INTERVAL: 0.33 WK
     Route: 050
     Dates: start: 20201221, end: 20201221
  51. RITUXIMAB [Suspect]
     Active Substance: RITUXIMAB
     Indication: Diffuse large B-cell lymphoma
     Dosage: 600 MG, TIW; TIME INTERVAL: 0.33 WK
     Route: 050
     Dates: start: 20210105, end: 20210216
  52. RITUXIMAB [Suspect]
     Active Substance: RITUXIMAB
     Dosage: 600 MG, TIW; TIME INTERVAL: 0.33 WK
     Route: 050
     Dates: start: 20210105, end: 20210216
  53. RITUXIMAB [Suspect]
     Active Substance: RITUXIMAB
     Dosage: 600 MG, TIW; TIME INTERVAL: 0.33 WK
     Route: 050
     Dates: start: 20210105, end: 20210216
  54. RITUXIMAB [Suspect]
     Active Substance: RITUXIMAB
     Dosage: 600 MG, TIW; TIME INTERVAL: 0.33 WK
     Route: 050
     Dates: start: 20210105, end: 20210216
  55. RITUXIMAB [Suspect]
     Active Substance: RITUXIMAB
     Dosage: 600 MG, TIW; TIME INTERVAL: 0.33 WK
     Route: 050
     Dates: start: 20210105, end: 20210216
  56. RITUXIMAB [Suspect]
     Active Substance: RITUXIMAB
     Dosage: DURATION: 1 DAY; TIME INTERVAL: 0.33 WK
     Route: 050
     Dates: start: 20210216, end: 20210216
  57. RITUXIMAB [Suspect]
     Active Substance: RITUXIMAB
     Dosage: DURATION: 1 DAY; TIME INTERVAL: 0.33 WK
     Route: 050
     Dates: start: 20210216, end: 20210216
  58. RITUXIMAB [Suspect]
     Active Substance: RITUXIMAB
     Dosage: DURATION: 1 DAY; TIME INTERVAL: 0.33 WK
     Route: 050
     Dates: start: 20210216, end: 20210216
  59. RITUXIMAB [Suspect]
     Active Substance: RITUXIMAB
     Dosage: DURATION: 1 DAY; TIME INTERVAL: 0.33 WK
     Route: 050
     Dates: start: 20210216, end: 20210216
  60. RITUXIMAB [Suspect]
     Active Substance: RITUXIMAB
     Dosage: DURATION: 1 DAY; TIME INTERVAL: 0.33 WK
     Route: 050
     Dates: start: 20210216, end: 20210216
  61. RITUXIMAB [Suspect]
     Active Substance: RITUXIMAB
     Dosage: 3 ML, TIW
     Route: 042
     Dates: start: 20201221
  62. RITUXIMAB [Suspect]
     Active Substance: RITUXIMAB
     Dosage: 9 MG/M2, TOTAL VOLUME PRIOR AE 560 MLDATE OF MOST RECENT DOSE PRIOR TO FIRST EPISODE OF NEUTROPENIA
     Dates: start: 20201124
  63. RITUXIMAB [Suspect]
     Active Substance: RITUXIMAB
     Dosage: 9 MG/M2, TOTAL VOLUME PRIOR AE 560 MLDATE OF MOST RECENT DOSE PRIOR TO FIRST EPISODE OF NEUTROPENIA
     Dates: start: 20201124
  64. RITUXIMAB [Suspect]
     Active Substance: RITUXIMAB
     Dosage: 9 MG/M2, TOTAL VOLUME PRIOR AE 560 MLDATE OF MOST RECENT DOSE PRIOR TO FIRST EPISODE OF NEUTROPENIA
     Dates: start: 20201124
  65. RITUXIMAB [Suspect]
     Active Substance: RITUXIMAB
     Dosage: 9 MG/M2, TOTAL VOLUME PRIOR AE 560 MLDATE OF MOST RECENT DOSE PRIOR TO FIRST EPISODE OF NEUTROPENIA
     Dates: start: 20201124
  66. RITUXIMAB [Suspect]
     Active Substance: RITUXIMAB
     Dosage: 3 ML, TIW
     Route: 050
     Dates: end: 20201221
  67. BENDAMUSTINE [Suspect]
     Active Substance: BENDAMUSTINE
     Indication: Product used for unknown indication
     Dosage: UNK
     Route: 065
  68. BENDAMUSTINE [Suspect]
     Active Substance: BENDAMUSTINE
     Dosage: UNK
     Route: 065
  69. DOXORUBICIN HYDROCHLORIDE [Suspect]
     Active Substance: DOXORUBICIN HYDROCHLORIDE
     Indication: Diffuse large B-cell lymphoma
     Dosage: 50 MILLIGRAM/SQ. METER, 3XW (50 MG/M2, TIW (DATE OF MOST RECENT DOSE PRIOR TO FIRST EPISODE OF NEUTR
     Route: 065
     Dates: start: 20201124
  70. DOXORUBICIN HYDROCHLORIDE [Suspect]
     Active Substance: DOXORUBICIN HYDROCHLORIDE
     Dosage: ADDITIONAL INFORMATION ON DRUG (FREE TEXT): PEGYLATED LIPOSOMAL 2 MG/ML CONCENTRATE FOR SOLUTION FOR
     Dates: start: 20201124
  71. CYCLOPHOSPHAMIDE [Suspect]
     Active Substance: CYCLOPHOSPHAMIDE
     Indication: Diffuse large B-cell lymphoma
     Dosage: 3780 MG/M2 EVERY 3 WEEKS/TOTAL VOLUME PRIOR AE 313 ML/DATE OF MOST RECENT DOSE PRIOR TO FIRST EPISOD
     Route: 042
     Dates: start: 20201124
  72. CYCLOPHOSPHAMIDE [Suspect]
     Active Substance: CYCLOPHOSPHAMIDE
     Dosage: 750 MG/M2
     Route: 042
  73. CYCLOPHOSPHAMIDE [Suspect]
     Active Substance: CYCLOPHOSPHAMIDE
     Dosage: 750 MG/M2 EVERY 3 WEEKS
     Route: 042
  74. CYCLOPHOSPHAMIDE [Suspect]
     Active Substance: CYCLOPHOSPHAMIDE
     Dosage: 750 MG/M2 EVERY 3 WEEKS
     Route: 042
  75. CYCLOPHOSPHAMIDE [Suspect]
     Active Substance: CYCLOPHOSPHAMIDE
     Dosage: UNK
  76. CYCLOPHOSPHAMIDE [Suspect]
     Active Substance: CYCLOPHOSPHAMIDE
     Dosage: UNK
     Route: 050
  77. CYCLOPHOSPHAMIDE [Suspect]
     Active Substance: CYCLOPHOSPHAMIDE
     Dosage: 1260 MG/M2 (TOTAL VOLUME: 313 ML)
     Route: 042
     Dates: start: 20201215, end: 20201215
  78. CYCLOPHOSPHAMIDE [Suspect]
     Active Substance: CYCLOPHOSPHAMIDE
     Dosage: 1260 MG/M2
     Route: 042
     Dates: start: 20210105, end: 20210105
  79. CYCLOPHOSPHAMIDE [Suspect]
     Active Substance: CYCLOPHOSPHAMIDE
     Dosage: 1260 MG/M2
     Route: 042
     Dates: start: 20210126, end: 20210126
  80. CYCLOPHOSPHAMIDE [Suspect]
     Active Substance: CYCLOPHOSPHAMIDE
     Dosage: 1260 MG/M2
     Route: 042
     Dates: start: 20210216
  81. CYCLOPHOSPHAMIDE [Suspect]
     Active Substance: CYCLOPHOSPHAMIDE
     Dosage: 1260 MG/M2
     Route: 042
     Dates: start: 20210309, end: 20210309
  82. CYCLOPHOSPHAMIDE [Suspect]
     Active Substance: CYCLOPHOSPHAMIDE
     Dosage: UNK, DOSAGE FORM: SOLUTION FOR INFUSION
     Route: 065
  83. CYCLOPHOSPHAMIDE [Suspect]
     Active Substance: CYCLOPHOSPHAMIDE
     Dosage: UNK, DOSAGE FORM: SOLUTION FOR INFUSION
     Route: 042
  84. CYCLOPHOSPHAMIDE [Suspect]
     Active Substance: CYCLOPHOSPHAMIDE
     Dosage: UNK
     Route: 042
  85. CYCLOPHOSPHAMIDE [Suspect]
     Active Substance: CYCLOPHOSPHAMIDE
     Dosage: UNK
     Route: 042
  86. CYCLOPHOSPHAMIDE [Suspect]
     Active Substance: CYCLOPHOSPHAMIDE
     Dosage: 3780 MG/M2 EVERY 3 WEEKS/TOTAL VOLUME PRIOR AE 313 ML/DATE OF MOST RECENT DOSE PRIOR TO FIRST EPISOD
     Route: 042
     Dates: start: 20201124
  87. CYCLOPHOSPHAMIDE [Suspect]
     Active Substance: CYCLOPHOSPHAMIDE
     Dosage: 3780 MG/M2 EVERY 3 WEEKS/TOTAL VOLUME PRIOR AE 313 ML/DATE OF MOST RECENT DOSE PRIOR TO FIRST EPISOD
     Route: 042
     Dates: start: 20201124
  88. CYCLOPHOSPHAMIDE [Suspect]
     Active Substance: CYCLOPHOSPHAMIDE
     Dosage: TOTAL VOLUME PRIOR AE 313 ML, DATE OF MOST RECENT DOSE PRIOR TO FIRST EPISODE OF NEUTROPENIA 24/N...
     Route: 042
     Dates: start: 20201124
  89. CYCLOPHOSPHAMIDE [Suspect]
     Active Substance: CYCLOPHOSPHAMIDE
     Dosage: TOTAL VOLUME PRIOR AE 313 ML, DATE OF MOST RECENT DOSE PRIOR TO FIRST EPISODE OF NEUTROPENIA 24/N...
     Route: 042
     Dates: start: 20201124
  90. CYCLOPHOSPHAMIDE [Suspect]
     Active Substance: CYCLOPHOSPHAMIDE
     Dosage: TOTAL VOLUME PRIOR AE 313 ML, DATE OF MOST RECENT DOSE PRIOR TO FIRST EPISODE OF NEUTROPENIA 24/N...
     Route: 042
     Dates: start: 20201124
  91. CYCLOPHOSPHAMIDE [Suspect]
     Active Substance: CYCLOPHOSPHAMIDE
     Dosage: UNK
     Route: 042
  92. CYCLOPHOSPHAMIDE [Suspect]
     Active Substance: CYCLOPHOSPHAMIDE
     Dosage: UNK
     Route: 042
  93. CYCLOPHOSPHAMIDE [Suspect]
     Active Substance: CYCLOPHOSPHAMIDE
     Dosage: UNK
     Route: 042
  94. CYCLOPHOSPHAMIDE [Suspect]
     Active Substance: CYCLOPHOSPHAMIDE
     Dosage: UNK
     Route: 042
  95. CYCLOPHOSPHAMIDE [Suspect]
     Active Substance: CYCLOPHOSPHAMIDE
     Dosage: UNK
     Route: 042
  96. CYCLOPHOSPHAMIDE [Suspect]
     Active Substance: CYCLOPHOSPHAMIDE
     Dosage: UNK
     Route: 042
  97. CYCLOPHOSPHAMIDE [Suspect]
     Active Substance: CYCLOPHOSPHAMIDE
     Dosage: 1260 MILLIGRAM/SQ. METER, 3XW (TOTAL VOLUME PRIOR AE 313 MLDATE OF MOST RECENT DOSE PRIOR TO FIRST E
     Route: 042
     Dates: start: 20201124
  98. CYCLOPHOSPHAMIDE [Suspect]
     Active Substance: CYCLOPHOSPHAMIDE
     Dosage: 1260 MG/M2, EVERY 3 WEEK, TOTAL VOLUME PRIOR AE 313 ML, DATE OF MOSTE RECENT DOSE PRIOR TO FIRST EPI
     Route: 042
     Dates: start: 20201124
  99. DOXORUBICIN [Suspect]
     Active Substance: DOXORUBICIN
     Indication: Diffuse large B-cell lymphoma
     Dosage: 80 MG/M2, EVERY 3 WEEKS/DATE OF MOST RECENT DOSE PRIOR TO FIRST EPISODE OF NEUTROPENIA (TOT... / ADD
     Route: 042
     Dates: start: 20201124
  100. DOXORUBICIN [Suspect]
     Active Substance: DOXORUBICIN
     Dosage: 50 MG/M2
     Route: 042
  101. DOXORUBICIN [Suspect]
     Active Substance: DOXORUBICIN
     Dosage: 50 MG/M2
     Route: 042
  102. DOXORUBICIN [Suspect]
     Active Substance: DOXORUBICIN
     Dosage: 50 MG/M2
  103. DOXORUBICIN [Suspect]
     Active Substance: DOXORUBICIN
     Dosage: UNK
     Route: 065
  104. DOXORUBICIN [Suspect]
     Active Substance: DOXORUBICIN
     Dosage: 80 MG/M2 (TOTAL VOLUME: 50 ML)
     Route: 042
     Dates: start: 20201215, end: 20201215
  105. DOXORUBICIN [Suspect]
     Active Substance: DOXORUBICIN
     Dosage: 80 MG/M2
     Route: 042
     Dates: start: 20210105, end: 20210105
  106. DOXORUBICIN [Suspect]
     Active Substance: DOXORUBICIN
     Dosage: 80 MG/M2
     Route: 042
     Dates: start: 20210126, end: 20210126
  107. DOXORUBICIN [Suspect]
     Active Substance: DOXORUBICIN
     Dosage: 50 MG/M2
     Route: 042
     Dates: start: 20210216
  108. DOXORUBICIN [Suspect]
     Active Substance: DOXORUBICIN
     Dosage: 80 MG/M2
     Route: 042
     Dates: start: 20210309, end: 20210309
  109. DOXORUBICIN [Suspect]
     Active Substance: DOXORUBICIN
     Dosage: 80 MG/M2, EVERY 3 WEEKS, ON DAY 1 OF EACH 21 DAY CYCLE, DATE OF MOST RECENT DOSE PRIOR TO FIRST EPIS
     Route: 050
     Dates: start: 20201124
  110. DOXORUBICIN [Suspect]
     Active Substance: DOXORUBICIN
     Dosage: UNK, DOSAGE FORM: INFUSION
     Route: 050
  111. DOXORUBICIN [Suspect]
     Active Substance: DOXORUBICIN
     Dosage: UNK
     Route: 065
  112. DOXORUBICIN [Suspect]
     Active Substance: DOXORUBICIN
     Dosage: UNK, DOSAGE FORM: INFUSION
     Route: 042
  113. DOXORUBICIN [Suspect]
     Active Substance: DOXORUBICIN
     Dosage: EVERY 3 WEEKS; ON DAY 1 OF EACH 21-DAY CYCLE DATE OF MOST RECENT DOSE PRIOR TO FIRST EPISODE OF NEUT
     Route: 050
     Dates: start: 20201124
  114. DOXORUBICIN [Suspect]
     Active Substance: DOXORUBICIN
     Dosage: EVERY 3 WEEKS; ON DAY 1 OF EACH 21-DAY CYCLE DATE OF MOST RECENT DOSE PRIOR TO FIRST EPISODE OF NEUT
     Route: 050
     Dates: start: 20201124
  115. DOXORUBICIN [Suspect]
     Active Substance: DOXORUBICIN
     Dosage: EVERY 3 WEEKS; ON DAY 1 OF EACH 21-DAY CYCLE DATE OF MOST RECENT DOSE PRIOR TO FIRST EPISODE OF NEUT
     Route: 050
     Dates: start: 20201124
  116. DOXORUBICIN [Suspect]
     Active Substance: DOXORUBICIN
     Dosage: UNK;
     Route: 042
  117. DOXORUBICIN [Suspect]
     Active Substance: DOXORUBICIN
     Dosage: UNK, DOSAGE FORM: INFUSION
     Route: 042
  118. DOXORUBICIN [Suspect]
     Active Substance: DOXORUBICIN
     Dosage: 80 MG/M2, EVERY 3 WEEKS, ON DAY 1 OF EACH 21 DAY CYCLE, DATE OF MOST RECENT DOSE PRIOR TO FIRST EPIS
     Route: 050
     Dates: start: 20201124
  119. DOXORUBICIN [Suspect]
     Active Substance: DOXORUBICIN
     Dosage: UNK
     Dates: start: 20201124
  120. DOXORUBICIN [Suspect]
     Active Substance: DOXORUBICIN
     Dosage: 80 MG/M2 (ON DAY 1 OF EACH 21-DAY CYCLE DATE OF MOST RECENT DOSE PRIOR TO FIRST EPISODE OF NEUTROPEN
     Route: 042
     Dates: start: 20201124
  121. DOXORUBICIN [Suspect]
     Active Substance: DOXORUBICIN
     Dosage: 80 MG/M2 (ON DAY 1 OF EACH 21-DAY CYCLE DATE OF MOST RECENT DOSE PRIOR TO FIRST EPISODE OF NEUTROPEN
     Route: 042
     Dates: start: 20201124
  122. DOXORUBICIN [Suspect]
     Active Substance: DOXORUBICIN
     Dosage: 80 MG/M2 (ON DAY 1 OF EACH 21-DAY CYCLE DATE OF MOST RECENT DOSE PRIOR TO FIRST EPISODE OF NEUTROPEN
     Route: 042
     Dates: start: 20201124
  123. DOXORUBICIN [Suspect]
     Active Substance: DOXORUBICIN
     Dosage: UNK
     Route: 042
  124. DOXORUBICIN [Suspect]
     Active Substance: DOXORUBICIN
     Dosage: UNK
     Route: 042
  125. DOXORUBICIN [Suspect]
     Active Substance: DOXORUBICIN
     Dosage: UNK
     Route: 042
  126. DOXORUBICIN [Suspect]
     Active Substance: DOXORUBICIN
     Dosage: UNK
     Route: 042
  127. DOXORUBICIN [Suspect]
     Active Substance: DOXORUBICIN
     Dosage: UNK
     Route: 042
  128. DOXORUBICIN [Suspect]
     Active Substance: DOXORUBICIN
     Dosage: UNK
     Route: 042
  129. GLOFITAMAB [Suspect]
     Active Substance: GLOFITAMAB
     Indication: Diffuse large B-cell lymphoma
     Dosage: 2.5 MG EVERY 3 WEEKS / THE MOST RECENT DOSE OF RO7082859 (10 MG) WAS ADMINISTERED ON 30/DEC/2020 AT
     Route: 065
     Dates: start: 20201222
  130. GLOFITAMAB [Suspect]
     Active Substance: GLOFITAMAB
     Dosage: 2.5 MG EVERY 3 WEEKS
     Route: 042
  131. GLOFITAMAB [Suspect]
     Active Substance: GLOFITAMAB
     Dosage: 2.5 MG EVERY 3 WEEKS
     Route: 042
  132. GLOFITAMAB [Suspect]
     Active Substance: GLOFITAMAB
     Dosage: 2.5 MG EVERY 3 WEEKS
     Route: 042
  133. GLOFITAMAB [Suspect]
     Active Substance: GLOFITAMAB
     Dosage: UNK
     Route: 065
  134. GLOFITAMAB [Suspect]
     Active Substance: GLOFITAMAB
     Dosage: 10 MG
     Dates: start: 20201230, end: 20201230
  135. GLOFITAMAB [Suspect]
     Active Substance: GLOFITAMAB
     Dosage: 30 MG/M2
     Dates: start: 20210119, end: 20210119
  136. GLOFITAMAB [Suspect]
     Active Substance: GLOFITAMAB
     Dosage: 30 MG
     Dates: start: 20210209, end: 20210209
  137. GLOFITAMAB [Suspect]
     Active Substance: GLOFITAMAB
     Dosage: 30 MG/M2
     Dates: start: 20210302, end: 20210302
  138. GLOFITAMAB [Suspect]
     Active Substance: GLOFITAMAB
     Dosage: 30 MG/M2
     Route: 042
     Dates: start: 20210309
  139. GLOFITAMAB [Suspect]
     Active Substance: GLOFITAMAB
     Dosage: 30 MG
     Route: 042
     Dates: start: 20210323, end: 20210323
  140. GLOFITAMAB [Suspect]
     Active Substance: GLOFITAMAB
     Dosage: UNK
     Route: 065
  141. GLOFITAMAB [Suspect]
     Active Substance: GLOFITAMAB
     Dosage: UNK
     Route: 065
  142. GLOFITAMAB [Suspect]
     Active Substance: GLOFITAMAB
     Dosage: EVERY 3 WEEKS; THE MOST RECENT DOSE OF RO7082859 (10 MG) WAS ADMINISTERED ON 30/DEC/2020 AT 1:30 PM
     Route: 050
     Dates: start: 20201222
  143. GLOFITAMAB [Suspect]
     Active Substance: GLOFITAMAB
     Dosage: EVERY 3 WEEKS; THE MOST RECENT DOSE OF RO7082859 (10 MG) WAS ADMINISTERED ON 30/DEC/2020 AT 1:30 PM
     Route: 050
     Dates: start: 20201222
  144. GLOFITAMAB [Suspect]
     Active Substance: GLOFITAMAB
     Dosage: EVERY 3 WEEKS; THE MOST RECENT DOSE OF RO7082859 (10 MG) WAS ADMINISTERED ON 30/DEC/2020 AT 1:30 PM
     Route: 050
     Dates: start: 20201222
  145. GLOFITAMAB [Suspect]
     Active Substance: GLOFITAMAB
     Dosage: UNK
     Route: 065
  146. GLOFITAMAB [Suspect]
     Active Substance: GLOFITAMAB
     Dosage: UNK
     Route: 065
  147. GLOFITAMAB [Suspect]
     Active Substance: GLOFITAMAB
     Dosage: UNK
     Route: 050
  148. GLOFITAMAB [Suspect]
     Active Substance: GLOFITAMAB
     Dosage: SAME DAY PATIENT RECEIVED GLOFITAMAB ANOTHER REGIMEN
     Dates: start: 20201222
  149. GLOFITAMAB [Suspect]
     Active Substance: GLOFITAMAB
     Dosage: UNK
     Route: 065
  150. GLOFITAMAB [Suspect]
     Active Substance: GLOFITAMAB
     Dosage: UNK
     Route: 050
  151. GLOFITAMAB [Suspect]
     Active Substance: GLOFITAMAB
     Dosage: UNK
     Route: 065
  152. GLOFITAMAB [Suspect]
     Active Substance: GLOFITAMAB
     Dosage: UNK
     Route: 065
  153. GLOFITAMAB [Suspect]
     Active Substance: GLOFITAMAB
     Dosage: UNK
     Route: 050
  154. GLOFITAMAB [Suspect]
     Active Substance: GLOFITAMAB
     Dosage: UNK
     Route: 050
  155. PREDNISOLONE [Suspect]
     Active Substance: PREDNISOLONE
     Indication: Diffuse large B-cell lymphoma
     Dosage: 100 MG / DATE OF MOST RECENT DOSE PRIOR TO FIRST EPISODE OF NEUTROPENIA 24/NOV/20220, DATE OF MOST R
     Route: 048
     Dates: start: 20201124
  156. PREDNISOLONE [Suspect]
     Active Substance: PREDNISOLONE
     Dosage: 100 MG/M2 / PRIOR TO FIRST OCCURRENCE OF NEUTROPENIA
     Route: 048
     Dates: start: 20201128
  157. PREDNISOLONE [Suspect]
     Active Substance: PREDNISOLONE
     Dosage: 100 MG/M2
     Route: 048
     Dates: start: 20201215
  158. PREDNISOLONE [Suspect]
     Active Substance: PREDNISOLONE
     Dosage: 100 MG
     Route: 048
     Dates: start: 20210109
  159. PREDNISOLONE [Suspect]
     Active Substance: PREDNISOLONE
     Dosage: 100 MG/M2
     Route: 048
     Dates: start: 20210218
  160. PREDNISOLONE [Suspect]
     Active Substance: PREDNISOLONE
     Dosage: MOST RECENT DOSE OF PREDNISOLONE PRIOR TO AE
     Dates: start: 20210220
  161. PREDNISOLONE [Suspect]
     Active Substance: PREDNISOLONE
     Dosage: 100 MG
     Route: 048
     Dates: start: 20210309
  162. PREDNISOLONE [Suspect]
     Active Substance: PREDNISOLONE
     Dosage: UNK
     Route: 065
     Dates: start: 20201118, end: 20201122
  163. PREDNISOLONE [Suspect]
     Active Substance: PREDNISOLONE
     Dosage: DATE OF MOST RECENT DOSE PRIOR TO FIRST EPISODE OF NEUTROPENIA 24/NOV/20220, DATE OF MOST RECENT D..
     Route: 048
     Dates: start: 20201124
  164. PREDNISOLONE [Suspect]
     Active Substance: PREDNISOLONE
     Dosage: DATE OF MOST RECENT DOSE PRIOR TO FIRST EPISODE OF NEUTROPENIA 24/NOV/20220, DATE OF MOST RECENT D..
     Route: 065
     Dates: start: 20201124
  165. PREDNISOLONE [Suspect]
     Active Substance: PREDNISOLONE
     Dosage: UNK
     Route: 065
  166. PREDNISOLONE [Suspect]
     Active Substance: PREDNISOLONE
     Dosage: UNK
     Route: 065
  167. PREDNISOLONE [Suspect]
     Active Substance: PREDNISOLONE
     Dosage: UNK
     Route: 065
     Dates: start: 20201118, end: 20201122
  168. PREDNISOLONE [Suspect]
     Active Substance: PREDNISOLONE
     Dosage: 100 MG / DATE OF MOST RECENT DOSE PRIOR TO FIRST EPISODE OF NEUTROPENIA 24/NOV/20220, DATE OF MOST R
     Route: 048
     Dates: start: 20201124
  169. PREDNISOLONE [Suspect]
     Active Substance: PREDNISOLONE
     Dosage: UNK
     Route: 048
     Dates: start: 20201124
  170. VALGANCICLOVIR [Suspect]
     Active Substance: VALGANCICLOVIR
     Indication: Cytomegalovirus viraemia
     Dosage: 900 MG/M2, TWICE A DAY / ADDITIONAL INFO: ROUTE:/DURATION: 18 DAYS; ;
     Route: 065
     Dates: start: 20210426, end: 20210513
  171. VALGANCICLOVIR [Suspect]
     Active Substance: VALGANCICLOVIR
     Dosage: UNK
     Route: 065
     Dates: start: 20210426, end: 20210513
  172. VINCRISTINE [Suspect]
     Active Substance: VINCRISTINE
     Indication: Diffuse large B-cell lymphoma
     Dosage: 6 MG/M2 EVERY 3 WEEKS/TOTAL VOLUME: 50 ML/DATE OF MOST RECENT DOSE PRIOR TO FIRST EPISODE OF NEUTROP
     Route: 042
     Dates: start: 20201124
  173. VINCRISTINE [Suspect]
     Active Substance: VINCRISTINE
     Dosage: 1.4 MG/M2
     Route: 065
  174. VINCRISTINE [Suspect]
     Active Substance: VINCRISTINE
     Dosage: 1.4 MG/M2
     Route: 065
  175. VINCRISTINE [Suspect]
     Active Substance: VINCRISTINE
     Dosage: 1.4 MG/M2
     Route: 042
  176. VINCRISTINE [Suspect]
     Active Substance: VINCRISTINE
     Dosage: UNK
     Route: 065
  177. VINCRISTINE [Suspect]
     Active Substance: VINCRISTINE
     Dosage: 2 MG/M2 (TOTAL VOLUME: 50 ML)
     Route: 042
     Dates: start: 20201215, end: 20201215
  178. VINCRISTINE [Suspect]
     Active Substance: VINCRISTINE
     Dosage: 2 MG/M2
     Route: 042
     Dates: start: 20210105, end: 20210105
  179. VINCRISTINE [Suspect]
     Active Substance: VINCRISTINE
     Dosage: 2 MG/M2
     Route: 042
     Dates: start: 20210126, end: 20210126
  180. VINCRISTINE [Suspect]
     Active Substance: VINCRISTINE
     Dosage: 1.4 MG/M2
     Route: 042
     Dates: start: 20210216
  181. VINCRISTINE [Suspect]
     Active Substance: VINCRISTINE
     Dosage: 2 MG/M2
     Route: 042
     Dates: start: 20210309, end: 20210309
  182. VINCRISTINE [Suspect]
     Active Substance: VINCRISTINE
     Dosage: UNK
     Route: 065
  183. VINCRISTINE [Suspect]
     Active Substance: VINCRISTINE
     Dosage: UNK
     Route: 065
  184. VINCRISTINE [Suspect]
     Active Substance: VINCRISTINE
     Dosage: UNK
     Route: 065
  185. VINCRISTINE [Suspect]
     Active Substance: VINCRISTINE
     Dosage: UNK
     Route: 065
  186. VINCRISTINE [Suspect]
     Active Substance: VINCRISTINE
     Dosage: UNK
     Route: 065
  187. VINCRISTINE [Suspect]
     Active Substance: VINCRISTINE
     Dosage: TOTAL VOLUME: 50 MLDATE OF MOST RECENT DOSE PRIOR TO FIRST EPISODE OF NEUTROPENIA 24/NOV/2020, S...
     Route: 065
     Dates: start: 20201124
  188. VINCRISTINE [Suspect]
     Active Substance: VINCRISTINE
     Dosage: TOTAL VOLUME: 50 MLDATE OF MOST RECENT DOSE PRIOR TO FIRST EPISODE OF NEUTROPENIA 24/NOV/2020, S...
     Route: 065
     Dates: start: 20201124
  189. VINCRISTINE [Suspect]
     Active Substance: VINCRISTINE
     Dosage: TOTAL VOLUME: 50 MLDATE OF MOST RECENT DOSE PRIOR TO FIRST EPISODE OF NEUTROPENIA 24/NOV/2020, S...
     Route: 065
     Dates: start: 20201124
  190. VINCRISTINE [Suspect]
     Active Substance: VINCRISTINE
     Dosage: UNK
     Route: 050
     Dates: start: 20201124
  191. VINCRISTINE [Suspect]
     Active Substance: VINCRISTINE
     Indication: Diffuse large B-cell lymphoma
     Dosage: UNK; ;
     Route: 065
  192. VINCRISTINE [Suspect]
     Active Substance: VINCRISTINE
     Dosage: UNK; ;
     Route: 065
  193. VINCRISTINE [Suspect]
     Active Substance: VINCRISTINE
     Dosage: UNK; ;
     Route: 065
  194. VINCRISTINE [Suspect]
     Active Substance: VINCRISTINE
     Dosage: TOTAL VOLUME: 50 ML, DATE OF MOST RECENT DOSE PRIOR TO FIRST EPISODE OF NEUTROPENIA 24/NOV/2020; ...
     Route: 065
     Dates: start: 20201124
  195. VINCRISTINE [Suspect]
     Active Substance: VINCRISTINE
     Dosage: TOTAL VOLUME: 50 ML, DATE OF MOST RECENT DOSE PRIOR TO FIRST EPISODE OF NEUTROPENIA 24/NOV/2020/ 9 M
     Route: 065
     Dates: start: 20201124
  196. VINCRISTINE [Suspect]
     Active Substance: VINCRISTINE
     Dosage: UNK
     Route: 065
  197. VINCRISTINE [Suspect]
     Active Substance: VINCRISTINE
     Dosage: UNK
     Route: 065
  198. VINCRISTINE [Suspect]
     Active Substance: VINCRISTINE
     Dosage: 9 MG/M2, THREE TIMES IN WEEK, TOTAL VOLUME: 50 ML DATE OF MOST RECENT DOSE PRIOR TO FIRST EPISODE OF
     Route: 042
     Dates: start: 20201124
  199. VINCRISTINE [Suspect]
     Active Substance: VINCRISTINE
     Dosage: 9 MG/M2, THREE TIMES IN WEEK, TOTAL VOLUME: 50 ML DATE OF MOST RECENT DOSE PRIOR TO FIRST EPISODE OF
     Route: 042
     Dates: start: 20201124
  200. VINCRISTINE [Suspect]
     Active Substance: VINCRISTINE
     Dosage: 9 MG/M2, THREE TIMES IN WEEK, TOTAL VOLUME: 50 ML DATE OF MOST RECENT DOSE PRIOR TO FIRST EPISODE OF
     Route: 042
     Dates: start: 20201124
  201. VINCRISTINE [Suspect]
     Active Substance: VINCRISTINE
     Dosage: TOTAL VOLUME: 50 ML, DATE OF MOST RECENT DOSE PRIOR TO FIRST EPISODE OF NEUTROPENIA 24/NOV/2020; ...
     Route: 050
     Dates: start: 20201124
  202. VINCRISTINE [Suspect]
     Active Substance: VINCRISTINE
     Dosage: UNK
     Route: 065
  203. VINCRISTINE [Suspect]
     Active Substance: VINCRISTINE
     Dosage: UNK
     Route: 065
  204. VINCRISTINE [Suspect]
     Active Substance: VINCRISTINE
     Dosage: UNK
     Route: 065
  205. VINCRISTINE [Suspect]
     Active Substance: VINCRISTINE
     Dosage: TOTAL VOLUME: 50 ML, DATE OF MOST RECENT DOSE PRIOR TO FIRST EPISODE OF NEUTROPENIA 24/NOV/2020; ...
     Route: 050
     Dates: start: 20201124
  206. VINCRISTINE [Suspect]
     Active Substance: VINCRISTINE
     Dosage: TOTAL VOLUME: 50 ML, DATE OF MOST RECENT DOSE PRIOR TO FIRST EPISODE OF NEUTROPENIA 24/NOV/2020; ...
     Route: 050
     Dates: start: 20201124
  207. VINCRISTINE [Suspect]
     Active Substance: VINCRISTINE
     Dosage: 2 MILLIGRAM/SQ. METER, 3XW (TOTAL VOLUME: 50 MLDATE OF MOST RECENT DOSE PRIOR TO FIRST EPISODE OF NE
     Route: 042
     Dates: start: 20201124
  208. VINCRISTINE [Suspect]
     Active Substance: VINCRISTINE
     Dosage: 2 MILLIGRAM/SQ. METER, 3XW (TOTAL VOLUME: 50 MLDATE OF MOST RECENT DOSE PRIOR TO FIRST EPISODE OF NE
     Route: 042
     Dates: start: 20201124
  209. VINCRISTINE [Suspect]
     Active Substance: VINCRISTINE
     Dosage: 2 MILLIGRAM/SQ. METER, 3XW (TOTAL VOLUME: 50 MLDATE OF MOST RECENT DOSE PRIOR TO FIRST EPISODE OF NE
     Route: 042
     Dates: start: 20201124
  210. ALLOPURINOL [Concomitant]
     Active Substance: ALLOPURINOL
     Indication: Prophylaxis
     Dosage: ADDITIONAL INFO: ROUTE:/UNK; ;
     Route: 065
     Dates: start: 20201118
  211. CHLORPHENIRAMINE MALEATE [Concomitant]
     Active Substance: CHLORPHENIRAMINE MALEATE
     Indication: Prophylaxis
     Dosage: 10 MG EVRY 3 WEEKS / DOSE LAST STUDY DRUG ADMIN PRIOR AE 1260 MG START AD END DATE OF MOST RECENT DO
     Route: 065
     Dates: start: 20201124, end: 20201124
  212. CHLORPHENIRAMINE MALEATE [Concomitant]
     Active Substance: CHLORPHENIRAMINE MALEATE
     Indication: Rash maculo-papular
     Dosage: 10 MG
     Route: 042
     Dates: start: 20201215, end: 20201215
  213. CHLORPHENIRAMINE MALEATE [Concomitant]
     Active Substance: CHLORPHENIRAMINE MALEATE
     Dosage: 10 MG
     Route: 042
     Dates: start: 20210126, end: 20210126
  214. CHLORPHENIRAMINE MALEATE [Concomitant]
     Active Substance: CHLORPHENIRAMINE MALEATE
     Dosage: 10 MG
     Route: 042
     Dates: start: 20210302, end: 20210302
  215. CHLORPHENIRAMINE MALEATE [Concomitant]
     Active Substance: CHLORPHENIRAMINE MALEATE
     Dosage: 10 MG
     Route: 042
     Dates: start: 20210323, end: 20210323
  216. CHLORPHENIRAMINE MALEATE [Concomitant]
     Active Substance: CHLORPHENIRAMINE MALEATE
     Dosage: 10 MG
     Route: 042
     Dates: start: 20210216, end: 20210216
  217. CHLORPHENIRAMINE MALEATE [Concomitant]
     Active Substance: CHLORPHENIRAMINE MALEATE
     Dosage: 10 MG
     Route: 042
     Dates: start: 20210119, end: 20210119
  218. CHLORPHENIRAMINE MALEATE [Concomitant]
     Active Substance: CHLORPHENIRAMINE MALEATE
     Dosage: 10 MG
     Route: 042
     Dates: start: 20210309, end: 20210309
  219. CHLORPHENIRAMINE MALEATE [Concomitant]
     Active Substance: CHLORPHENIRAMINE MALEATE
     Dosage: 10 MG
     Route: 042
     Dates: start: 20210209, end: 20210209
  220. CHLORPHENIRAMINE MALEATE [Concomitant]
     Active Substance: CHLORPHENIRAMINE MALEATE
     Dosage: 10 MG
     Route: 065
     Dates: start: 20201217
  221. CHLORPHENIRAMINE MALEATE [Concomitant]
     Active Substance: CHLORPHENIRAMINE MALEATE
     Dosage: 10 MG; DURATION: 1 DAY; ;
     Route: 050
     Dates: start: 20210323, end: 20210323
  222. CHLORPHENIRAMINE MALEATE [Concomitant]
     Active Substance: CHLORPHENIRAMINE MALEATE
     Dosage: 10 MG; DURATION: 1 DAY; ;
     Route: 065
     Dates: start: 20201215, end: 20201215
  223. CHLORPHENIRAMINE MALEATE [Concomitant]
     Active Substance: CHLORPHENIRAMINE MALEATE
     Dosage: 10 MG; DURATION: 1 DAY;
     Route: 065
     Dates: start: 20210309, end: 20210309
  224. CHLORPHENIRAMINE MALEATE [Concomitant]
     Active Substance: CHLORPHENIRAMINE MALEATE
     Dosage: 10 MG; DURATION: 1 DAY;
     Route: 065
     Dates: start: 20210119, end: 20210119
  225. CHLORPHENIRAMINE MALEATE [Concomitant]
     Active Substance: CHLORPHENIRAMINE MALEATE
     Dosage: UNK; (DOSAGE TEXT: 10 MG)
     Route: 065
     Dates: start: 20201217
  226. CHLORPHENIRAMINE MALEATE [Concomitant]
     Active Substance: CHLORPHENIRAMINE MALEATE
     Dosage: 10 MG; DURATION: 1 DAY;
     Route: 065
     Dates: start: 20210302, end: 20210302
  227. CHLORPHENIRAMINE MALEATE [Concomitant]
     Active Substance: CHLORPHENIRAMINE MALEATE
     Dosage: 10 MG; DURATION: 1 DAY;
     Route: 065
     Dates: start: 20210126, end: 20210126
  228. CHLORPHENIRAMINE MALEATE [Concomitant]
     Active Substance: CHLORPHENIRAMINE MALEATE
     Dosage: 10 MG;
     Route: 065
     Dates: start: 20210216, end: 20210216
  229. CHLORPHENIRAMINE MALEATE [Concomitant]
     Active Substance: CHLORPHENIRAMINE MALEATE
     Dosage: 10 MG; DURATION: 1 DAY; ;
     Route: 065
     Dates: start: 20210209, end: 20210209
  230. CHLORPHENIRAMINE MALEATE [Concomitant]
     Active Substance: CHLORPHENIRAMINE MALEATE
     Dosage: DOSE LAST STUDY DRUG ADMIN PRIOR AE 1260 MGSTART AD END DATE OF MOST RECENT DOSE OF STUDY DRUG PRI
     Route: 050
     Dates: start: 20210209, end: 20210209
  231. CHLORPHENIRAMINE MALEATE [Concomitant]
     Active Substance: CHLORPHENIRAMINE MALEATE
     Dosage: 10 MG;
     Route: 050
     Dates: start: 20211206, end: 20211206
  232. CHLORPHENIRAMINE MALEATE [Concomitant]
     Active Substance: CHLORPHENIRAMINE MALEATE
     Dosage: UNK
     Route: 050
     Dates: start: 20210209, end: 20210209
  233. CHLORPHENIRAMINE MALEATE [Concomitant]
     Active Substance: CHLORPHENIRAMINE MALEATE
     Dosage: UNK
     Route: 050
     Dates: start: 20210309, end: 20210309
  234. CHLORPHENIRAMINE MALEATE [Concomitant]
     Active Substance: CHLORPHENIRAMINE MALEATE
     Dosage: UNK
     Route: 050
     Dates: start: 20210302, end: 20210302
  235. CHLORPHENIRAMINE MALEATE [Concomitant]
     Active Substance: CHLORPHENIRAMINE MALEATE
     Dosage: UNK
     Route: 065
     Dates: start: 20210323, end: 20210323
  236. CHLORPHENIRAMINE MALEATE [Concomitant]
     Active Substance: CHLORPHENIRAMINE MALEATE
     Dosage: UNK
     Route: 050
     Dates: start: 20210216, end: 20210216
  237. CHLORPHENIRAMINE MALEATE [Concomitant]
     Active Substance: CHLORPHENIRAMINE MALEATE
     Dosage: UNK
     Route: 065
     Dates: start: 20201217
  238. CHLORPHENIRAMINE MALEATE [Concomitant]
     Active Substance: CHLORPHENIRAMINE MALEATE
     Dosage: UNK
     Route: 050
     Dates: start: 20201215, end: 20201215
  239. CHLORPHENIRAMINE MALEATE [Concomitant]
     Active Substance: CHLORPHENIRAMINE MALEATE
     Dosage: UNK
     Route: 050
     Dates: start: 20201124, end: 20201124
  240. CHLORPHENIRAMINE MALEATE [Concomitant]
     Active Substance: CHLORPHENIRAMINE MALEATE
     Dosage: 10MG
     Route: 065
     Dates: start: 20210119, end: 20210119
  241. CODEINE [Concomitant]
     Active Substance: CODEINE
     Indication: Pain
     Dosage: UNK
     Route: 065
     Dates: start: 20201123
  242. CODEINE [Concomitant]
     Active Substance: CODEINE
     Dosage: 30 MILLIGRAM (AS NECESSARY)
     Route: 065
     Dates: start: 20201224, end: 20201224
  243. CODEINE [Concomitant]
     Active Substance: CODEINE
     Dosage: UNK
     Route: 050
     Dates: start: 20201123
  244. DEXAMETHASONE [Concomitant]
     Active Substance: DEXAMETHASONE
     Indication: Product used for unknown indication
     Dosage: 20 MILLIGRAM
     Route: 065
     Dates: start: 20210119, end: 20210119
  245. DEXAMETHASONE [Concomitant]
     Active Substance: DEXAMETHASONE
     Dosage: 20 MILLIGRAM
     Route: 065
     Dates: start: 20210209, end: 20210209
  246. DEXAMETHASONE [Concomitant]
     Active Substance: DEXAMETHASONE
     Dosage: 20 MILLIGRAM
     Route: 065
     Dates: start: 20210302, end: 20210302
  247. DEXAMETHASONE [Concomitant]
     Active Substance: DEXAMETHASONE
     Dosage: 20 MILLIGRAM
     Route: 065
     Dates: start: 20210323, end: 20210323
  248. FILGRASTIM [Concomitant]
     Active Substance: FILGRASTIM
     Indication: Prophylaxis
     Dosage: UNK
     Route: 065
     Dates: start: 20201129, end: 20201206
  249. FILGRASTIM [Concomitant]
     Active Substance: FILGRASTIM
     Dosage: UNK
     Route: 065
     Dates: start: 20201220, end: 20210513
  250. FILGRASTIM [Concomitant]
     Active Substance: FILGRASTIM
     Dosage: UNK
     Route: 065
     Dates: start: 20201220
  251. OMEPRAZOLE [Concomitant]
     Active Substance: DONEPEZIL HYDROCHLORIDE\OMEPRAZOLE\OMEPRAZOLE MAGNESIUM
     Indication: Gastrointestinal disorder prophylaxis
     Dosage: UNK
     Route: 050
     Dates: start: 20201118
  252. OMEPRAZOLE [Concomitant]
     Active Substance: DONEPEZIL HYDROCHLORIDE\OMEPRAZOLE\OMEPRAZOLE MAGNESIUM
     Dosage: UNK
     Route: 065
  253. OMEPRAZOLE [Concomitant]
     Active Substance: DONEPEZIL HYDROCHLORIDE\OMEPRAZOLE\OMEPRAZOLE MAGNESIUM
     Dosage: UNK
     Route: 065
     Dates: start: 20201118
  254. ACETAMINOPHEN [Concomitant]
     Active Substance: ACETAMINOPHEN
     Indication: Prophylaxis
     Dosage: UNK (ADDITIONAL INFORMATION ON DRUG (FREE TEXT): ADDITIONAL INFO: ROUTE:UNKNOWN ROUTE:UNKNOWN ROUTE:
     Route: 065
     Dates: start: 20201123
  255. ACETAMINOPHEN [Concomitant]
     Active Substance: ACETAMINOPHEN
     Dosage: 1000 MG / ADDITIONAL INFO: ROUTE:; DURATION: 1 DAY; (ADDITIONAL INFORMATION ON DRUG (FREE TEXT): ADD
     Route: 065
     Dates: start: 20201124, end: 20201124
  256. ACETAMINOPHEN [Concomitant]
     Active Substance: ACETAMINOPHEN
     Dosage: 1000 MG; DURATION: 1 DAY; (ADDITIONAL INFORMATION ON DRUG (FREE TEXT): ADDITIONAL INFO: ROUTE:UNKNOW
     Route: 065
     Dates: start: 20201215, end: 20201215
  257. ACETAMINOPHEN [Concomitant]
     Active Substance: ACETAMINOPHEN
     Dosage: 1000 MG; DURATION: 1 DAY; (ADDITIONAL INFORMATION ON DRUG (FREE TEXT): ADDITIONAL INFO: ROUTE:UNKNOW
     Route: 065
     Dates: start: 20210119, end: 20210119
  258. ACETAMINOPHEN [Concomitant]
     Active Substance: ACETAMINOPHEN
     Dosage: 1000 MG
     Route: 048
     Dates: start: 20210126, end: 20210126
  259. ACETAMINOPHEN [Concomitant]
     Active Substance: ACETAMINOPHEN
     Dosage: 100 MG; DURATION: 1 DAY; (ADDITIONAL INFORMATION ON DRUG (FREE TEXT): ADDITIONAL INFO: ROUTE:UNKNOWN
     Route: 065
     Dates: start: 20210126, end: 20210126
  260. ACETAMINOPHEN [Concomitant]
     Active Substance: ACETAMINOPHEN
     Dosage: 1000 MG; DURATION: 1 DAY;
     Route: 050
     Dates: start: 20210126, end: 20210126
  261. ACETAMINOPHEN [Concomitant]
     Active Substance: ACETAMINOPHEN
     Dosage: 1000 MG; DURATION: 1 DAY; (ADDITIONAL INFORMATION ON DRUG (FREE TEXT): ADDITIONAL INFO: ROUTE:UNKNOW
     Route: 065
     Dates: start: 20210209, end: 20210209
  262. ACETAMINOPHEN [Concomitant]
     Active Substance: ACETAMINOPHEN
     Dosage: 1000 MG; DURATION: 1 DAY; (ADDITIONAL INFORMATION ON DRUG (FREE TEXT): ADDITIONAL INFO: ROUTE:UNKNOW
     Route: 065
     Dates: start: 20210216, end: 20210216
  263. ACETAMINOPHEN [Concomitant]
     Active Substance: ACETAMINOPHEN
     Dosage: 1000 MG; DURATION: 1 DAY; (ADDITIONAL INFORMATION ON DRUG (FREE TEXT): ADDITIONAL INFO: ROUTE:UNKNOW
     Route: 065
     Dates: start: 20210302, end: 20210302
  264. ACETAMINOPHEN [Concomitant]
     Active Substance: ACETAMINOPHEN
     Dosage: 1000 MG; DURATION: 1 DAY; (ADDITIONAL INFORMATION ON DRUG (FREE TEXT): ADDITIONAL INFO: ROUTE:UNKNOW
     Route: 065
     Dates: start: 20210309, end: 20210309
  265. ACETAMINOPHEN [Concomitant]
     Active Substance: ACETAMINOPHEN
     Dosage: 1000 MG; DURATION: 1 DAY; (ADDITIONAL INFORMATION ON DRUG (FREE TEXT): ADDITIONAL INFO: ROUTE:UNKNOW
     Route: 065
     Dates: start: 20210323, end: 20210323
  266. ACETAMINOPHEN [Concomitant]
     Active Substance: ACETAMINOPHEN
     Dosage: 1000 MG
     Route: 048
     Dates: start: 20210323, end: 20210323
  267. ACETAMINOPHEN [Concomitant]
     Active Substance: ACETAMINOPHEN
     Dosage: 100 MG
     Route: 065
     Dates: start: 20210126, end: 20210126
  268. PREDNISOLONE [Concomitant]
     Active Substance: PREDNISOLONE
     Indication: Diffuse large B-cell lymphoma
     Dosage: ADDITIONAL INFO: ROUTE:
     Route: 048
     Dates: start: 20201118, end: 20201122
  269. PREDNISOLONE [Concomitant]
     Active Substance: PREDNISOLONE
     Dosage: UNK
     Route: 048
     Dates: start: 20201118, end: 20201122
  270. PREDNISOLONE [Concomitant]
     Active Substance: PREDNISOLONE
     Dosage: UNK
     Route: 050
     Dates: start: 20201124
  271. PREDNISOLONE [Concomitant]
     Active Substance: PREDNISOLONE
     Dosage: UNK
     Route: 050
     Dates: start: 20201118, end: 20201122
  272. SENNA [Concomitant]
     Active Substance: SENNA LEAF\SENNOSIDES\SENNOSIDES A AND B
     Indication: Constipation
     Dosage: UNK
     Route: 065
     Dates: start: 20201124
  273. SENOKOT [Concomitant]
     Active Substance: SENNOSIDES
     Indication: Constipation
     Dosage: UNK, SENNA PODS POWDERED
     Route: 065
  274. SENOKOT [Concomitant]
     Active Substance: SENNOSIDES
     Dosage: UNK, SENNA PODS POWDERED

REACTIONS (6)
  - Death [Fatal]
  - Neutropenia [Recovered/Resolved]
  - Off label use [Unknown]
  - Product use in unapproved indication [Unknown]
  - Product use issue [Unknown]
  - Overdose [Unknown]

NARRATIVE: CASE EVENT DATE: 20201124
